FAERS Safety Report 5250489-3 (Version None)
Quarter: 2007Q1

REPORT INFORMATION
  Report Type: 
  Country: None (occurrence: None)
  Receive Date: 20070228
  Receipt Date: 20060424
  Transmission Date: 20070707
  Serious: No
  Sender: FDA-Public Use
  Company Number: US-GLAXOSMITHKLINE-A0603024A

PATIENT
  Age: 44 Year
  Sex: Female

DRUGS (2)
  1. LAMICTAL [Suspect]
     Indication: DEPRESSION
     Dosage: 200MG PER DAY
     Route: 048
  2. DEPAKOTE [Concomitant]

REACTIONS (5)
  - DRUG INEFFECTIVE [None]
  - ENERGY INCREASED [None]
  - PRURITUS GENERALISED [None]
  - RASH [None]
  - WEIGHT INCREASED [None]
